FAERS Safety Report 4537358-9 (Version None)
Quarter: 2004Q4

REPORT INFORMATION
  Report Type: 
  Country: None (occurrence: None)
  Receive Date: 20041223
  Receipt Date: 20041216
  Transmission Date: 20050328
  Serious: Yes (Hospitalization)
  Sender: FDA-Public Use
  Company Number: US-ABBOTT-04P-163-0283876-00

PATIENT
  Sex: Female
  Weight: 44.946 kg

DRUGS (1)
  1. HUMIRA [Suspect]
     Indication: RHEUMATOID ARTHRITIS
     Route: 058
     Dates: start: 20020101, end: 20041101

REACTIONS (4)
  - HAEMATEMESIS [None]
  - MUCOSAL INFLAMMATION [None]
  - RECTAL HAEMORRHAGE [None]
  - RETCHING [None]
